FAERS Safety Report 7434852-8 (Version None)
Quarter: 2011Q2

REPORT INFORMATION
  Report Type: 
  Country: None (occurrence: None)
  Receive Date: 20110425
  Receipt Date: 20110420
  Transmission Date: 20111010
  Serious: Yes (Hospitalization)
  Sender: FDA-Public Use
  Company Number: FR-ABBOTT-11P-056-0720656-00

PATIENT
  Age: 30 Year
  Sex: Female

DRUGS (3)
  1. HUMIRA [Suspect]
     Indication: ANKYLOSING SPONDYLITIS
  2. HOLGYEME [Suspect]
     Indication: ORAL CONTRACEPTION
     Dosage: 2 MG/0.035 MG ONCE A DAY
     Route: 048
     Dates: start: 20110117
  3. HUMIRA [Suspect]
     Indication: CROHN'S DISEASE

REACTIONS (1)
  - DEEP VEIN THROMBOSIS [None]
